FAERS Safety Report 6755806-0 (Version None)
Quarter: 2010Q2

REPORT INFORMATION
  Report Type: 
  Country: None (occurrence: None)
  Receive Date: 20100604
  Receipt Date: 20080212
  Transmission Date: 20101027
  Serious: Yes (Hospitalization)
  Sender: FDA-Public Use
  Company Number: -SANOFI-AVENTIS-200721333GDDC

PATIENT
  Age: 13 Year
  Sex: Female

DRUGS (6)
  1. METRONIDAZOLE [Suspect]
     Dosage: DOSE AS USED: UNK
  2. CEFOTAXIME SODIUM [Suspect]
     Dosage: DOSE AS USED: UNK
  3. MESALAZINE [Suspect]
     Dosage: DOSE AS USED: UNK
  4. DICLOFENAC [Suspect]
     Route: 054
  5. HYDROCORTISONE [Suspect]
     Dosage: DOSE AS USED: UNK
  6. NO MENTION OF CONCOMITANT DRUGS [Concomitant]

REACTIONS (3)
  - RENAL CORTICAL NECROSIS [None]
  - RENAL FAILURE ACUTE [None]
  - RENAL TUBULAR NECROSIS [None]
